FAERS Safety Report 15136830 (Version 1)
Quarter: 2018Q3

REPORT INFORMATION
  Report Type: Spontaneous
  Country: SI (occurrence: SI)
  Receive Date: 20180712
  Receipt Date: 20180712
  Transmission Date: 20181010
  Serious: Yes (Death, Other)
  Sender: FDA-Public Use
  Company Number: PHHY2018SI042313

PATIENT
  Age: 66 Year
  Sex: Male

DRUGS (1)
  1. NELARABINE [Suspect]
     Active Substance: NELARABINE
     Indication: T-CELL TYPE ACUTE LEUKAEMIA
     Dosage: UNK
     Route: 065
     Dates: start: 201506

REACTIONS (4)
  - Fungal infection [Fatal]
  - Acute myeloid leukaemia [Unknown]
  - Disease recurrence [Unknown]
  - Neutropenia [Unknown]

NARRATIVE: CASE EVENT DATE: 20150731
